FAERS Safety Report 8459877 (Version 3)
Quarter: 2013Q3

REPORT INFORMATION
  Report Type: Spontaneous
  Country: US (occurrence: US)
  Receive Date: 20120314
  Receipt Date: 20130904
  Transmission Date: 20140515
  Serious: Yes (Other)
  Sender: FDA-Public Use
  Company Number: US-ASTRAZENECA-2011SE65312

PATIENT
  Age: 34 Year
  Sex: Male
  Weight: 93 kg

DRUGS (5)
  1. TOPROL XL [Suspect]
     Indication: ATRIAL FIBRILLATION
     Dosage: CUTTING 100 MG TABS IN HALF AND TAKING HALF IN MORNING AND HALF EVENING
     Route: 048
  2. TOPROL XL [Suspect]
     Indication: ATRIAL FIBRILLATION
     Route: 048
  3. TOPROL XL [Suspect]
     Indication: ATRIAL FIBRILLATION
     Dosage: TAKES HALF
     Route: 048
  4. TOPROL XL [Suspect]
     Indication: ATRIAL FIBRILLATION
     Route: 048
     Dates: start: 2004
  5. ASPIRIN [Concomitant]

REACTIONS (10)
  - Nephrolithiasis [Unknown]
  - Atrial fibrillation [Unknown]
  - Cardiac disorder [Unknown]
  - Heart rate increased [Unknown]
  - Tachycardia [Unknown]
  - Intentional drug misuse [Unknown]
  - Drug effect decreased [Unknown]
  - Off label use [Unknown]
  - Intentional drug misuse [Unknown]
  - Intercepted drug dispensing error [Unknown]
